FAERS Safety Report 25711912 (Version 2)
Quarter: 2025Q3

REPORT INFORMATION
  Report Type: Spontaneous
  Country: US (occurrence: US)
  Receive Date: 20250821
  Receipt Date: 20250926
  Transmission Date: 20251020
  Serious: No
  Sender: Kenvue
  Company Number: US-KENVUE-20250710943

PATIENT
  Sex: Female

DRUGS (16)
  1. TYLENOL [Suspect]
     Active Substance: ACETAMINOPHEN
     Indication: Headache
     Route: 065
     Dates: start: 202504
  2. TYLENOL [Suspect]
     Active Substance: ACETAMINOPHEN
     Indication: Arthralgia
  3. TYLENOL [Suspect]
     Active Substance: ACETAMINOPHEN
     Indication: Pain in extremity
  4. TYLENOL [Suspect]
     Active Substance: ACETAMINOPHEN
     Indication: Back pain
  5. TYLENOL [Suspect]
     Active Substance: ACETAMINOPHEN
     Indication: Pain in jaw
  6. TYLENOL [Suspect]
     Active Substance: ACETAMINOPHEN
     Indication: Pain
  7. ORENITRAM [Concomitant]
     Active Substance: TREPROSTINIL
     Indication: Pulmonary arterial hypertension
     Dosage: 0.625 MILLIGRAM, THRICE A DAY
     Route: 048
     Dates: end: 2025
  8. ORENITRAM [Concomitant]
     Active Substance: TREPROSTINIL
     Dosage: 0.75 MILLIGRAM, THRICE A DAY
     Route: 048
     Dates: start: 2025, end: 2025
  9. ORENITRAM [Concomitant]
     Active Substance: TREPROSTINIL
     Dosage: 0.875 MILLIGRAM, THRICE A DAY (1 TABLET OF 0.125 MG AND 3 TABLETS OF 0.25 MG)
     Route: 048
     Dates: start: 2025, end: 202507
  10. ORENITRAM [Concomitant]
     Active Substance: TREPROSTINIL
     Dosage: 1.125 MILLIGRAM, THRICE A DAY, (1 TABLET OF 1 MG AND 0.125 MG EACH)
     Route: 048
     Dates: start: 202507, end: 2025
  11. ORENITRAM [Concomitant]
     Active Substance: TREPROSTINIL
     Dosage: 1.25 MILLIGRAM, THRICE A DAY. (1 TABLET OF 0.25 MG AND 1 MG EACH)
     Route: 048
     Dates: start: 2025, end: 202508
  12. ORENITRAM [Concomitant]
     Active Substance: TREPROSTINIL
     Dosage: 1.375 MILLIGRAM, THRICE A DAY. (1 TABLET OF 0.125 MG, 0.25 AND 1 MG EACH)
     Route: 048
     Dates: start: 202508
  13. ORENITRAM [Concomitant]
     Active Substance: TREPROSTINIL
     Route: 048
     Dates: start: 2024
  14. FUROSEMIDE [Concomitant]
     Active Substance: FUROSEMIDE
     Indication: Generalised oedema
     Route: 065
     Dates: start: 202504
  15. OXYGEN [Concomitant]
     Active Substance: OXYGEN
     Indication: Dyspnoea at rest
     Route: 065
     Dates: start: 202504
  16. UNSPECIFIED INGREDIENT [Concomitant]
     Active Substance: UNSPECIFIED INGREDIENT
     Indication: Generalised oedema
     Route: 065
     Dates: start: 2025

REACTIONS (2)
  - Pain [Unknown]
  - Therapeutic product effect incomplete [Unknown]

NARRATIVE: CASE EVENT DATE: 20250101
